FAERS Safety Report 5276317-8 (Version None)
Quarter: 2007Q1

REPORT INFORMATION
  Report Type: 
  Country: None (occurrence: None)
  Receive Date: 20070326
  Receipt Date: 20070314
  Transmission Date: 20070707
  Serious: Yes (Hospitalization)
  Sender: FDA-Public Use
  Company Number: US-PFIZER INC-2007019169

PATIENT
  Sex: Female

DRUGS (2)
  1. CHANTIX [Suspect]
  2. NAPROXEN [Suspect]

REACTIONS (1)
  - ANAPHYLACTIC REACTION [None]
